FAERS Safety Report 6865425-3 (Version None)
Quarter: 2010Q3

REPORT INFORMATION
  Report Type: 
  Country: None (occurrence: None)
  Receive Date: 20100721
  Receipt Date: 20080421
  Transmission Date: 20110219
  Serious: No
  Sender: FDA-Public Use
  Company Number: US-PFIZER INC-2008035573

PATIENT
  Sex: Female
  Weight: 54.4 kg

DRUGS (4)
  1. CHANTIX [Suspect]
     Indication: SMOKING CESSATION THERAPY
     Dates: start: 20080411
  2. KARIVA [Concomitant]
  3. MONTELUKAST SODIUM [Concomitant]
  4. MULTI-VITAMINS [Concomitant]

REACTIONS (4)
  - ABDOMINAL DISCOMFORT [None]
  - HEADACHE [None]
  - INSOMNIA [None]
  - LETHARGY [None]
